FAERS Safety Report 23100432 (Version 1)
Quarter: 2023Q4

REPORT INFORMATION
  Report Type: Spontaneous
  Country: HR (occurrence: HR)
  Receive Date: 20231024
  Receipt Date: 20231024
  Transmission Date: 20240110
  Serious: Yes (Other)
  Sender: FDA-Public Use
  Company Number: None

PATIENT

DRUGS (1)
  1. SUBUTEX [Suspect]
     Active Substance: BUPRENORPHINE HYDROCHLORIDE
     Indication: Product used for unknown indication
     Dosage: UNK
     Route: 060
     Dates: start: 20230919, end: 20230919

REACTIONS (2)
  - Loss of consciousness [Unknown]
  - Intentional overdose [Unknown]

NARRATIVE: CASE EVENT DATE: 20230919
